FAERS Safety Report 11717108 (Version 3)
Quarter: 2015Q4

REPORT INFORMATION
  Report Type: Spontaneous
  Country: US (occurrence: US)
  Receive Date: 20151104
  Receipt Date: 20151120
  Transmission Date: 20160304
  Serious: No
  Sender: FDA-Public Use
  Company Number: US-ELI_LILLY_AND_COMPANY-US201103003144

PATIENT
  Age: 67 Year
  Sex: Female

DRUGS (12)
  1. FORTEO [Suspect]
     Active Substance: TERIPARATIDE
     Dosage: 20 UG, QD
     Route: 065
     Dates: start: 20110406
  2. CALCIUM [Concomitant]
     Active Substance: CALCIUM
  3. FORTEO [Suspect]
     Active Substance: TERIPARATIDE
     Dosage: 20 UG, QD
     Dates: end: 20110527
  4. FORTEO [Suspect]
     Active Substance: TERIPARATIDE
     Dosage: 20 UG, QD
     Dates: end: 20110705
  5. COENZYME Q10 [Concomitant]
     Active Substance: UBIDECARENONE
     Indication: MUSCLE SPASMS
     Dosage: UNK
     Route: 065
  6. FORTEO [Suspect]
     Active Substance: TERIPARATIDE
     Dosage: 20 UG, QOD
     Route: 065
  7. FORTEO [Suspect]
     Active Substance: TERIPARATIDE
     Dosage: 20 UG, QD
     Route: 065
  8. FORTEO [Suspect]
     Active Substance: TERIPARATIDE
     Dosage: 20 UG, QD
  9. FORTEO [Suspect]
     Active Substance: TERIPARATIDE
     Dosage: 20 UG, QD
     Route: 065
  10. TETANUS VACCINE [Concomitant]
     Active Substance: CLOSTRIDIUM TETANI TOXOID ANTIGEN (FORMALDEHYDE INACTIVATED)
  11. FORTEO [Suspect]
     Active Substance: TERIPARATIDE
     Indication: OSTEOPOROSIS
     Dosage: 20 UG, DAILY (1/D)
     Dates: start: 20110216
  12. FORTEO [Suspect]
     Active Substance: TERIPARATIDE
     Dosage: 20 UG, QD
     Route: 065

REACTIONS (14)
  - Blood urea abnormal [Unknown]
  - Pain in extremity [Recovering/Resolving]
  - Blood calcium increased [Unknown]
  - Muscular weakness [Recovering/Resolving]
  - Pain [Not Recovered/Not Resolved]
  - Blood creatinine abnormal [Unknown]
  - Pain [Recovering/Resolving]
  - Heart rate increased [Unknown]
  - Pain [Unknown]
  - Incorrect product storage [Unknown]
  - Heart rate irregular [Unknown]
  - Gait disturbance [Unknown]
  - Pain in extremity [Recovered/Resolved]
  - Vaccination complication [Unknown]

NARRATIVE: CASE EVENT DATE: 201102
